FAERS Safety Report 7250770-2 (Version None)
Quarter: 2011Q1

REPORT INFORMATION
  Report Type: 
  Country: None (occurrence: None)
  Receive Date: 20110128
  Receipt Date: 20090728
  Transmission Date: 20110831
  Serious: No
  Sender: FDA-Public Use
  Company Number: US-ABBOTT-10P-163-0692918-00

PATIENT
  Sex: Female
  Weight: 56.75 kg

DRUGS (32)
  1. FLAXSEED EXTRACT [Concomitant]
     Route: 048
     Dates: start: 20090616, end: 20090708
  2. FERROUS SULFATE TAB [Concomitant]
     Indication: ANAEMIA
  3. PREDNISONE [Concomitant]
     Route: 048
     Dates: start: 20081228, end: 20090103
  4. PREDNISONE [Concomitant]
     Route: 048
     Dates: start: 20090118, end: 20090124
  5. PREDNISONE [Concomitant]
     Route: 048
     Dates: start: 20081214, end: 20081220
  6. PREDNISONE [Concomitant]
     Route: 048
     Dates: start: 20090224, end: 20090302
  7. PREDNISONE [Concomitant]
     Route: 048
     Dates: start: 20090622, end: 20090708
  8. TYLENOL-500 [Concomitant]
     Indication: HEADACHE
     Dosage: 1 PILL X 1 TOTAL
     Route: 048
     Dates: start: 20090601, end: 20090615
  9. PRENATAL VITAMINS [Concomitant]
     Indication: PRODUCT USED FOR UNKNOWN INDICATION
     Dosage: 1 PILL ONCE DAILY
     Route: 048
     Dates: start: 20081006, end: 20090708
  10. FISH OIL [Concomitant]
     Indication: CROHN'S DISEASE
     Route: 048
     Dates: start: 20081006, end: 20090201
  11. LACTATE [Concomitant]
     Indication: DYSPEPSIA
     Dosage: 1 PILL AS REQUIRED
     Route: 048
     Dates: start: 20090201, end: 20090708
  12. WINE [Concomitant]
     Indication: PRODUCT USED FOR UNKNOWN INDICATION
     Dosage: CHAMPAGNE - 4 SIPS X 1 SERVING TOTAL
     Route: 048
     Dates: start: 20090501, end: 20090531
  13. HUMIRA [Suspect]
     Indication: CROHN'S DISEASE
     Dates: start: 20081006, end: 20090619
  14. PREDNISONE [Concomitant]
     Route: 048
     Dates: start: 20090303, end: 20090309
  15. CITRUCEL [Concomitant]
     Indication: CONSTIPATION
     Dosage: 1000MG X 4.5 TOTAL
     Route: 048
     Dates: start: 20090215, end: 20090221
  16. FLAXSEED EXTRACT [Concomitant]
     Indication: CROHN'S DISEASE
     Route: 048
     Dates: start: 20090202, end: 20090615
  17. FERROUS SULFATE TAB [Concomitant]
     Indication: IRON DEFICIENCY
     Route: 048
     Dates: start: 20081006, end: 20090708
  18. TEA [Concomitant]
     Indication: PRODUCT USED FOR UNKNOWN INDICATION
     Dosage: 1.125 SERVINGS X 10 (EACH SERVING 8-10)
     Route: 048
     Dates: start: 20081006, end: 20090317
  19. PREDNISONE [Concomitant]
     Route: 048
     Dates: start: 20090310, end: 20090316
  20. ERYTHROMYCIN [Concomitant]
     Indication: ACNE
     Dosage: FACE, SCALP
     Route: 061
     Dates: start: 20081006, end: 20091201
  21. DOCUSATE CALCIUM [Concomitant]
     Indication: CONSTIPATION
     Route: 048
     Dates: start: 20090201, end: 20090415
  22. PREDNISONE [Concomitant]
     Route: 048
     Dates: start: 20090111, end: 20090117
  23. CALCIUM [Concomitant]
     Indication: OSTEOPENIA
     Route: 048
     Dates: start: 20081006, end: 20090708
  24. PREDNISONE [Concomitant]
     Indication: CROHN'S DISEASE
     Route: 048
     Dates: start: 20081207, end: 20081213
  25. PREDNISONE [Concomitant]
     Route: 048
     Dates: start: 20081221, end: 20081227
  26. FLU VACCINE NOS [Concomitant]
     Indication: PRODUCT USED FOR UNKNOWN INDICATION
     Dosage: 1 SHOT ONCE A MONTH
     Route: 050
     Dates: start: 20081001, end: 20081031
  27. BEANO [Concomitant]
     Indication: DYSPEPSIA
     Dosage: 2 PILLS AS REQUIRED
     Route: 048
     Dates: start: 20081006, end: 20090401
  28. CAFFEINE [Concomitant]
     Indication: PRODUCT USED FOR UNKNOWN INDICATION
     Dosage: TEA OR SODA, 1 SERVING ONCE A WEEK
     Route: 048
     Dates: start: 20090319, end: 20090615
  29. PREDNISONE [Concomitant]
     Route: 048
     Dates: start: 20090104, end: 20090110
  30. PREDNISONE [Concomitant]
     Route: 048
     Dates: start: 20090317, end: 20090501
  31. PREDNISONE [Concomitant]
     Route: 048
     Dates: start: 20090502, end: 20090621
  32. CANASA [Concomitant]
     Indication: CROHN'S DISEASE
     Dosage: RECTAL / VAGINAL 1.5 PILL AS REQUIRED
     Route: 061
     Dates: start: 20081006, end: 20090708

REACTIONS (6)
  - RESPIRATORY TRACT INFECTION [None]
  - CONSTIPATION [None]
  - ACNE [None]
  - CROHN'S DISEASE [None]
  - HEADACHE [None]
  - PYREXIA [None]
